FAERS Safety Report 5560121-7 (Version None)
Quarter: 2007Q4

REPORT INFORMATION
  Report Type: 
  Country: None (occurrence: None)
  Receive Date: 20071214
  Receipt Date: 20071022
  Transmission Date: 20080405
  Serious: No
  Sender: FDA-Public Use
  Company Number: US-ABBOTT-07P-163-0422060-00

PATIENT
  Sex: Female
  Weight: 100 kg

DRUGS (20)
  1. HUMIRA [Suspect]
     Indication: RHEUMATOID ARTHRITIS
     Route: 058
     Dates: start: 20071001
  2. METOPROLOL [Concomitant]
     Indication: HYPERTENSION
  3. METFORMIN HCL [Concomitant]
     Indication: TYPE 2 DIABETES MELLITUS
  4. HUMULIN 70/30 [Concomitant]
     Indication: DRUG USE FOR UNKNOWN INDICATION
  5. PIOGLITAZONE [Concomitant]
     Indication: TYPE 2 DIABETES MELLITUS
  6. DETROPAN [Concomitant]
     Indication: RENAL IMPAIRMENT
  7. OXYCODONE HYDROCHLORIDE [Concomitant]
     Indication: PAIN
  8. LEVOTHYROXINE SODIUM [Concomitant]
     Indication: THYROID DISORDER
  9. LISINOPRIL [Concomitant]
     Indication: HYPERTENSION
  10. ESTROGENS CONJUGATED [Concomitant]
     Indication: HORMONE THERAPY
  11. IBUPROFEN [Concomitant]
     Indication: ARTHRITIS
  12. HUMULIN R [Concomitant]
     Indication: DRUG USE FOR UNKNOWN INDICATION
  13. FOLIC ACID [Concomitant]
     Indication: DRUG USE FOR UNKNOWN INDICATION
  14. METHOTREXATE [Concomitant]
     Indication: DRUG USE FOR UNKNOWN INDICATION
  15. HYDROCODONE APAP/500 [Concomitant]
     Indication: DRUG USE FOR UNKNOWN INDICATION
  16. FLEXERILL [Concomitant]
     Indication: MUSCLE RELAXANT THERAPY
  17. UNKNOWN MUSCLE RELAXER [Concomitant]
     Indication: MUSCLE RELAXANT THERAPY
  18. ATORVASTATIN CALCIUM [Concomitant]
     Indication: BLOOD CHOLESTEROL
  19. FLUTICASONE PROPIONATE [Concomitant]
     Indication: DRUG USE FOR UNKNOWN INDICATION
  20. PREDNISONE [Concomitant]
     Indication: DRUG USE FOR UNKNOWN INDICATION

REACTIONS (1)
  - INJECTION SITE PAIN [None]
